FAERS Safety Report 24591271 (Version 2)
Quarter: 2025Q2

REPORT INFORMATION
  Report Type: Report from Study
  Country: JP (occurrence: JP)
  Receive Date: 20241108
  Receipt Date: 20250618
  Transmission Date: 20250717
  Serious: Yes (Other)
  Sender: UCB
  Company Number: JP-UCBJ-CD202410796UCBPHAPROD

PATIENT
  Age: 5 Year
  Sex: Female

DRUGS (1)
  1. FENFLURAMINE HYDROCHLORIDE [Suspect]
     Active Substance: FENFLURAMINE HYDROCHLORIDE
     Indication: Severe myoclonic epilepsy of infancy
     Route: 048

REACTIONS (1)
  - Pneumonia mycoplasmal [Unknown]
